FAERS Safety Report 14757142 (Version 2)
Quarter: 2020Q1

REPORT INFORMATION
  Report Type: Spontaneous
  Country: RO (occurrence: RO)
  Receive Date: 20180413
  Receipt Date: 20200110
  Transmission Date: 20200409
  Serious: Yes (Other)
  Sender: FDA-Public Use
  Company Number: RO-AUROBINDO-AUR-APL-2018-020224

PATIENT
  Age: 32 Year
  Sex: Male

DRUGS (3)
  1. ABACAVIR+LAMIVUDINE [Suspect]
     Active Substance: ABACAVIR SULFATE\LAMIVUDINE
     Indication: HIV INFECTION
     Dosage: UNK, TWO TIMES A DAY
     Route: 065
  2. PENTACARINAT [Concomitant]
     Active Substance: PENTAMIDINE ISETHIONATE
     Indication: ANTIFUNGAL PROPHYLAXIS
     Dosage: DOSAGE FORM: AEROSOLS
     Route: 050
  3. DARUNAVIR;RITONAVIR [Suspect]
     Active Substance: DARUNAVIR\RITONAVIR
     Indication: HIV INFECTION
     Dosage: UNK UNK, TWO TIMES A DAY
     Route: 048

REACTIONS (6)
  - Facial paralysis [Unknown]
  - Immune reconstitution inflammatory syndrome [Recovering/Resolving]
  - Progressive multifocal leukoencephalopathy [Recovering/Resolving]
  - Pyrexia [Unknown]
  - Cranial nerve paralysis [Not Recovered/Not Resolved]
  - Dysphagia [Not Recovered/Not Resolved]
